FAERS Safety Report 9370983 (Version 1)
Quarter: 2013Q2

REPORT INFORMATION
  Report Type: Report from Study
  Country: CA (occurrence: CA)
  Receive Date: 20130627
  Receipt Date: 20130627
  Transmission Date: 20140414
  Serious: Yes (Hospitalization)
  Sender: FDA-Public Use
  Company Number: CA-ROCHE-563266

PATIENT
  Age: 42 Year
  Sex: Female
  Weight: 55 kg

DRUGS (3)
  1. BEVACIZUMAB [Suspect]
     Indication: OVARIAN EPITHELIAL CANCER
     Dosage: GIVEN ON DAY 1 EVERY 3 WEEKS FOR 6 CYCLES.
     Route: 042
  2. CARBOPLATIN [Suspect]
     Indication: OVARIAN EPITHELIAL CANCER
     Dosage: AREA UNDER THE CURVE (AUC) 6L GIVEN OVER 30-60 MINUTES ON DAY 1 EVERY 3 WEEKS FOR 6 CYCLES.
     Route: 042
  3. PACLITAXEL [Suspect]
     Indication: OVARIAN EPITHELIAL CANCER
     Dosage: GIVEN OVER 3 HOURS ON DAY 1 EVERY 3 WEEKS FOR 6 CYCLES.
     Route: 042

REACTIONS (3)
  - Fatigue [Recovered/Resolved]
  - Peripheral sensory neuropathy [Recovered/Resolved]
  - Dizziness [Recovered/Resolved]
